FAERS Safety Report 15638961 (Version 1)
Quarter: 2018Q4

REPORT INFORMATION
  Report Type: Spontaneous
  Country: US (occurrence: US)
  Receive Date: 20181114
  Receipt Date: 20181114
  Transmission Date: 20190205
  Serious: Yes (Other)
  Sender: FDA-Public Use
  Company Number: None

PATIENT
  Age: 63 Year
  Sex: Female
  Weight: 102.97 kg

DRUGS (2)
  1. LORATADINE 10MG [Suspect]
     Active Substance: LORATADINE
     Indication: DRUG HYPERSENSITIVITY
     Dosage: ?          OTHER FREQUENCY:1 DAILY;?
     Route: 048
     Dates: start: 20161003, end: 20171002
  2. LORATADINE 10MG [Suspect]
     Active Substance: LORATADINE
     Indication: DERMATITIS CONTACT
     Dosage: ?          OTHER FREQUENCY:1 DAILY;?
     Route: 048
     Dates: start: 20161003, end: 20171002

REACTIONS (2)
  - Product substitution issue [None]
  - Urticaria [None]

NARRATIVE: CASE EVENT DATE: 20171002
